FAERS Safety Report 7727309-8 (Version None)
Quarter: 2011Q3

REPORT INFORMATION
  Report Type: 
  Country: None (occurrence: None)
  Receive Date: 20110902
  Receipt Date: 20110823
  Transmission Date: 20111222
  Serious: Yes (Other)
  Sender: FDA-Public Use
  Company Number: GB-JNJFOC-20110900138

PATIENT
  Age: 45 Year
  Sex: Female

DRUGS (2)
  1. CETIRIZINE HCL [Suspect]
     Route: 048
  2. CETIRIZINE HCL [Suspect]
     Indication: SEASONAL ALLERGY
     Dosage: TWO TABLETS WITHIN THE SPACE OF A WEEK.
     Route: 048

REACTIONS (2)
  - DEPRESSION [None]
  - SUICIDAL IDEATION [None]
